FAERS Safety Report 19004546 (Version 2)
Quarter: 2021Q1

REPORT INFORMATION
  Report Type: Spontaneous
  Country: US (occurrence: US)
  Receive Date: 20210312
  Receipt Date: 20210317
  Transmission Date: 20210420
  Serious: No
  Sender: FDA-Public Use
  Company Number: US-PFIZER INC-2021133168

PATIENT
  Age: 79 Year
  Sex: Female
  Weight: 56.24 kg

DRUGS (1)
  1. CIPROFLOXACIN. [Suspect]
     Active Substance: CIPROFLOXACIN
     Dosage: UNK
     Dates: start: 2018

REACTIONS (9)
  - Dysstasia [Unknown]
  - Musculoskeletal pain [Unknown]
  - Gait inability [Unknown]
  - Pain in extremity [Unknown]
  - Muscle spasms [Unknown]
  - Muscle tightness [Unknown]
  - Movement disorder [Unknown]
  - Arthralgia [Unknown]
  - Asthenia [Unknown]

NARRATIVE: CASE EVENT DATE: 20210131
